FAERS Safety Report 16279775 (Version 3)
Quarter: 2019Q4

REPORT INFORMATION
  Report Type: Report from Study
  Country: NL (occurrence: NL)
  Receive Date: 20190507
  Receipt Date: 20191016
  Transmission Date: 20200122
  Serious: Yes (Hospitalization)
  Sender: FDA-Public Use
  Company Number: NL-ROCHE-2312259

PATIENT
  Age: 71 Year
  Sex: Female

DRUGS (2)
  1. COBIMETINIB. [Suspect]
     Active Substance: COBIMETINIB
     Indication: NEOPLASM
     Dosage: ON 26/JAN/2019, SHE RECEIVED LAST DOSE OF COBIMITINIB PRIOR TO ONSET OF ADVERSE EVENT.
     Route: 048
     Dates: start: 20190108
  2. VEMURAFENIB. [Suspect]
     Active Substance: VEMURAFENIB
     Indication: NEOPLASM
     Dosage: ON 01/MAY/2019, SHE RECEIVED LAST DOSE OF VEMURAFENIB PRIOR TO ONSET OF ADVERSE EVENT.
     Route: 048
     Dates: start: 20190308

REACTIONS (1)
  - Gastric perforation [Unknown]

NARRATIVE: CASE EVENT DATE: 20190502
